FAERS Safety Report 4996774-1 (Version None)
Quarter: 2006Q2

REPORT INFORMATION
  Report Type: 
  Country: None (occurrence: None)
  Receive Date: 20060509
  Receipt Date: 20060130
  Transmission Date: 20061013
  Serious: Yes (Hospitalization, Disabling)
  Sender: FDA-Public Use
  Company Number: US-MERCK-0602USA00090

PATIENT
  Age: 56 Year
  Sex: Female
  Weight: 101 kg

DRUGS (7)
  1. VIOXX [Suspect]
     Indication: ARTHRITIS
     Route: 048
     Dates: start: 20030101, end: 20041001
  2. CAPOTEN [Concomitant]
     Route: 065
  3. MOTRIN [Concomitant]
     Route: 065
  4. CARDIZEM [Concomitant]
     Route: 065
  5. NEURONTIN [Concomitant]
     Route: 065
  6. CAPTOPRIL [Concomitant]
     Route: 065
  7. ECOTRIN [Concomitant]
     Route: 065

REACTIONS (14)
  - ACUTE MYOCARDIAL INFARCTION [None]
  - ARTHRALGIA [None]
  - ATRIAL FIBRILLATION [None]
  - BRADYCARDIA [None]
  - CORONARY ARTERY DISEASE [None]
  - DIARRHOEA [None]
  - DYSPNOEA [None]
  - EJECTION FRACTION DECREASED [None]
  - INSOMNIA [None]
  - OVERGROWTH BACTERIAL [None]
  - PALPITATIONS [None]
  - SINUS TACHYCARDIA [None]
  - SUPRAVENTRICULAR EXTRASYSTOLES [None]
  - VENTRICULAR EXTRASYSTOLES [None]
